FAERS Safety Report 5411182-7 (Version None)
Quarter: 2007Q3

REPORT INFORMATION
  Report Type: 
  Country: None (occurrence: None)
  Receive Date: 20070810
  Receipt Date: 20070807
  Transmission Date: 20080115
  Serious: Yes (Hospitalization)
  Sender: FDA-Public Use
  Company Number: A0668651A

PATIENT
  Age: 29 Year
  Sex: Female

DRUGS (3)
  1. IMITREX [Suspect]
     Indication: MIGRAINE
     Dosage: 6MG AS REQUIRED
     Route: 050
  2. IMITREX [Suspect]
     Route: 048
  3. UNKNOWN MEDICATION [Concomitant]

REACTIONS (5)
  - DIZZINESS [None]
  - DRUG ADMINISTRATION ERROR [None]
  - DRUG INEFFECTIVE [None]
  - FOOD POISONING [None]
  - MIGRAINE [None]
